FAERS Safety Report 9253904 (Version 3)
Quarter: 2014Q1

REPORT INFORMATION
  Report Type: Spontaneous
  Country: US (occurrence: US)
  Receive Date: 20130425
  Receipt Date: 20140103
  Transmission Date: 20141002
  Serious: Yes (Disabling)
  Sender: FDA-Public Use
  Company Number: US-ASTRAZENECA-2013SE27624

PATIENT
  Age: 67 Year
  Sex: Female
  Weight: 65.8 kg

DRUGS (35)
  1. NEXIUM [Suspect]
     Indication: GASTROOESOPHAGEAL REFLUX DISEASE
     Dosage: ONCE A DAY
     Route: 048
  2. NEXIUM [Suspect]
     Indication: GASTROOESOPHAGEAL REFLUX DISEASE
     Dosage: 40 MG 1 TO 2 TIMES DAY
     Route: 048
     Dates: start: 2000
  3. NEXIUM [Suspect]
     Indication: GASTROOESOPHAGEAL REFLUX DISEASE
     Route: 048
     Dates: start: 20061205
  4. NEXIUM [Suspect]
     Indication: GASTROOESOPHAGEAL REFLUX DISEASE
     Route: 048
     Dates: start: 20071101
  5. ZANTAC [Concomitant]
  6. TAGAMET [Concomitant]
  7. TUMS [Concomitant]
  8. MILK OF MAGNESIA [Concomitant]
  9. PEPTO BISMOL [Concomitant]
  10. MYLANTA [Concomitant]
  11. ALKA SELTZER [Concomitant]
  12. EVISTA [Concomitant]
     Indication: OSTEOPOROSIS
     Dosage: ONCE A DAY
  13. BONIVA [Concomitant]
     Indication: OSTEOPOROSIS
     Dates: start: 20080101
  14. CYCLOBENZAPR [Concomitant]
     Dates: start: 20080101
  15. ALPRAZOLAM [Concomitant]
     Indication: DEPRESSION
     Dates: start: 20080102
  16. ALPRAZOLAM [Concomitant]
     Indication: ANXIETY
     Dates: start: 20080102
  17. TEMAZEPAM [Concomitant]
     Dates: start: 20080102
  18. REQUIP [Concomitant]
     Indication: RESTLESS LEGS SYNDROME
     Dates: start: 20080102
  19. LIPITOR [Concomitant]
     Indication: BLOOD CHOLESTEROL
     Dates: start: 20080118
  20. CYMBALTA [Concomitant]
     Indication: DEPRESSION
     Dates: start: 20080218
  21. PROMETHAZINE [Concomitant]
     Dates: start: 20080325
  22. CARISOPRODOL [Concomitant]
     Indication: PAIN
     Dates: start: 20081023
  23. DEXILANT [Concomitant]
     Dates: start: 2012
  24. SUCRALFATE [Concomitant]
     Indication: GASTROOESOPHAGEAL REFLUX DISEASE
     Dosage: 2 TSPS 3 TIMES DAY
     Dates: start: 2007
  25. PEPCID [Concomitant]
     Indication: GASTROOESOPHAGEAL REFLUX DISEASE
     Dates: start: 2007
  26. GREEN LIZARD [Concomitant]
     Indication: GASTROOESOPHAGEAL REFLUX DISEASE
     Dates: start: 2012
  27. ANTACIDS [Concomitant]
     Dosage: AS NEEDED
  28. ZOCOR [Concomitant]
     Indication: BLOOD CHOLESTEROL
  29. MOBIC [Concomitant]
     Indication: ARTHRITIS
  30. LORTAB [Concomitant]
     Indication: PAIN
  31. PROZAC [Concomitant]
     Indication: DEPRESSION
  32. PREDNISONE [Concomitant]
     Dates: start: 20070306
  33. MELOXICAM [Concomitant]
     Dates: start: 20071002
  34. AZITHROMYCIN [Concomitant]
     Dates: start: 20081009
  35. PHENTERMINE [Concomitant]
     Dates: start: 20081121

REACTIONS (20)
  - Spinal fracture [Unknown]
  - Osteoporosis [Unknown]
  - Bone disorder [Unknown]
  - Multiple fractures [Unknown]
  - Exostosis [Unknown]
  - Hip deformity [Unknown]
  - Rotator cuff syndrome [Unknown]
  - Calcium deficiency [Unknown]
  - Cataract [Unknown]
  - Vitamin D deficiency [Unknown]
  - Emotional distress [Unknown]
  - Gastrointestinal disorder [Unknown]
  - Osteopenia [Unknown]
  - Osteoarthritis [Unknown]
  - Carpal tunnel syndrome [Unknown]
  - Spinal osteoarthritis [Unknown]
  - Chondromalacia [Unknown]
  - Intervertebral disc degeneration [Unknown]
  - Arthritis [Unknown]
  - Depression [Unknown]
